FAERS Safety Report 8560203-1 (Version None)
Quarter: 2012Q3

REPORT INFORMATION
  Report Type: 
  Country: None (occurrence: None)
  Receive Date: 20120802
  Receipt Date: 20120723
  Transmission Date: 20120928
  Serious: Yes (Other)
  Sender: FDA-Public Use
  Company Number: US-CELGENEUS-163-21880-12072209

PATIENT
  Sex: Female
  Weight: 92.162 kg

DRUGS (15)
  1. POTASSIUM CHLORIDE [Concomitant]
     Route: 065
  2. DEXAMETHASONE [Concomitant]
     Route: 065
  3. VELCADE [Suspect]
     Route: 065
  4. LASIX [Concomitant]
     Route: 065
  5. ZOCOR [Concomitant]
     Route: 065
  6. PREDNISONE [Concomitant]
     Route: 065
  7. REVLIMID [Suspect]
     Indication: MULTIPLE MYELOMA
     Dosage: 25 MILLIGRAM
     Route: 048
     Dates: start: 20120625
  8. NORVASC [Concomitant]
     Route: 065
  9. COREG [Concomitant]
     Route: 065
  10. ACYCLOVIR [Concomitant]
     Route: 065
  11. PLAVIX [Concomitant]
     Route: 065
  12. IMDUR [Concomitant]
     Route: 065
  13. REVLIMID [Suspect]
     Dosage: 15 MILLIGRAM
     Route: 048
     Dates: start: 20120101
  14. ZANTAC [Concomitant]
     Route: 065
  15. LORTAB [Concomitant]
     Route: 065

REACTIONS (2)
  - HEADACHE [None]
  - TOXICITY TO VARIOUS AGENTS [None]
